FAERS Safety Report 10812180 (Version 2)
Quarter: 2015Q1

REPORT INFORMATION
  Report Type: Spontaneous
  Country: JP (occurrence: JP)
  Receive Date: 20150218
  Receipt Date: 20150301
  Transmission Date: 20150721
  Serious: Yes (Other)
  Sender: FDA-Public Use
  Company Number: JP-UCBSA-2015003927

PATIENT
  Age: 56 Year
  Sex: Male

DRUGS (8)
  1. CLONAZEPAM. [Concomitant]
     Active Substance: CLONAZEPAM
     Indication: CLONIC CONVULSION
     Dosage: UNKNOWN DOSE
     Route: 048
  2. TEMOZOLOMIDE. [Concomitant]
     Active Substance: TEMOZOLOMIDE
     Indication: NEOPLASM
     Dosage: UNKNOWN DOSE
     Route: 042
  3. LAMOTRIGINE. [Concomitant]
     Active Substance: LAMOTRIGINE
     Indication: CLONIC CONVULSION
     Dosage: UNKNOWN DOSE
     Route: 048
  4. KEPPRA [Suspect]
     Active Substance: LEVETIRACETAM
     Indication: CLONIC CONVULSION
     Dosage: UNKNOWN DOSE
     Route: 048
  5. CARBAMAZEPINE. [Concomitant]
     Active Substance: CARBAMAZEPINE
     Indication: CLONIC CONVULSION
     Dosage: UNKNOWN DOSE
     Route: 048
  6. KEPPRA [Suspect]
     Active Substance: LEVETIRACETAM
     Dosage: DOSE INCREASED
  7. BEVACIZUMAB [Concomitant]
     Active Substance: BEVACIZUMAB
     Indication: NEOPLASM
     Dosage: UNKNOWN DOSE
     Route: 042
  8. LAMOTRIGINE. [Concomitant]
     Active Substance: LAMOTRIGINE
     Dosage: DOSE INCREASED

REACTIONS (3)
  - Dizziness [Unknown]
  - Hemiplegia [Unknown]
  - Somnolence [Unknown]
